FAERS Safety Report 20744022 (Version 1)
Quarter: 2022Q2

REPORT INFORMATION
  Report Type: Spontaneous
  Country: CA (occurrence: CA)
  Receive Date: 20220425
  Receipt Date: 20220425
  Transmission Date: 20220720
  Serious: Yes (Other)
  Sender: FDA-Public Use
  Company Number: CA-ABBVIE-22K-028-4367859-00

PATIENT
  Age: 14 Year
  Sex: Male
  Weight: 78.6 kg

DRUGS (18)
  1. HUMIRA [Suspect]
     Active Substance: ADALIMUMAB
     Indication: Product used for unknown indication
     Route: 058
  2. VEDOLIZUMAB [Suspect]
     Active Substance: VEDOLIZUMAB
     Indication: Product used for unknown indication
     Route: 065
  3. INFLECTRA [Suspect]
     Active Substance: INFLIXIMAB-DYYB
     Indication: Crohn^s disease
     Dosage: 0,2,6 WEEKS THEN EVERY 4 WEEKS
     Route: 042
     Dates: start: 20200225
  4. INFLECTRA [Suspect]
     Active Substance: INFLIXIMAB-DYYB
     Dosage: 0,2,6 WEEKS THEN EVERY 4 WEEKS
     Route: 042
     Dates: start: 20210601, end: 2021
  5. INFLECTRA [Suspect]
     Active Substance: INFLIXIMAB-DYYB
     Dosage: 0,2,6 WEEKS THEN EVERY 4 WEEKS
     Route: 042
     Dates: start: 20210708, end: 2021
  6. INFLECTRA [Suspect]
     Active Substance: INFLIXIMAB-DYYB
     Dosage: 0,2,6 WEEKS THEN EVERY 4 WEEKS
     Route: 042
     Dates: start: 20210812, end: 2021
  7. INFLECTRA [Suspect]
     Active Substance: INFLIXIMAB-DYYB
     Dosage: 0,2,6 WEEKS THEN EVERY 4 WEEKS
     Route: 042
     Dates: start: 20210909, end: 2021
  8. INFLECTRA [Suspect]
     Active Substance: INFLIXIMAB-DYYB
     Dosage: 0,2,6 WEEKS THEN EVERY 4 WEEKS
     Route: 042
     Dates: start: 20211005, end: 2021
  9. INFLECTRA [Suspect]
     Active Substance: INFLIXIMAB-DYYB
     Dosage: 0,2,6 WEEKS THEN EVERY 4 WEEKS
     Route: 042
     Dates: start: 20211109, end: 2021
  10. INFLECTRA [Suspect]
     Active Substance: INFLIXIMAB-DYYB
     Dosage: 0,2,6 WEEKS THEN EVERY 4 WEEKS
     Route: 042
     Dates: start: 20211207
  11. INFLECTRA [Suspect]
     Active Substance: INFLIXIMAB-DYYB
     Dosage: 0,2,6 WEEKS THEN EVERY 4 WEEKS
     Route: 042
     Dates: start: 20220113, end: 2022
  12. INFLECTRA [Suspect]
     Active Substance: INFLIXIMAB-DYYB
     Dosage: 0,2,6 WEEKS THEN EVERY 4 WEEKS
     Route: 042
     Dates: start: 20220203, end: 2022
  13. INFLECTRA [Suspect]
     Active Substance: INFLIXIMAB-DYYB
     Dosage: 0,2,6 WEEKS THEN EVERY 4 WEEKS
     Route: 042
     Dates: start: 20220324
  14. AZATHIOPRINE [Concomitant]
     Active Substance: AZATHIOPRINE
     Indication: Product used for unknown indication
  15. BUDESONIDE [Concomitant]
     Active Substance: BUDESONIDE
     Indication: Product used for unknown indication
  16. VITAMIN D [Concomitant]
     Active Substance: VITAMIN D NOS
     Indication: Product used for unknown indication
  17. PREDNISONE [Concomitant]
     Active Substance: PREDNISONE
     Indication: Product used for unknown indication
  18. LANSOPRAZOLE [Concomitant]
     Active Substance: LANSOPRAZOLE
     Indication: Product used for unknown indication

REACTIONS (14)
  - Gastrointestinal stenosis [Recovered/Resolved]
  - Mouth ulceration [Unknown]
  - Weight fluctuation [Unknown]
  - Surgery [Unknown]
  - Lower limb fracture [Unknown]
  - Drug ineffective [Unknown]
  - Acne [Unknown]
  - General physical health deterioration [Not Recovered/Not Resolved]
  - Inappropriate schedule of product administration [Unknown]
  - Off label use [Unknown]
  - Inflammation [Unknown]
  - Drug ineffective [Unknown]
  - Drug ineffective [Unknown]
  - Abdominal pain [Unknown]

NARRATIVE: CASE EVENT DATE: 20200109
